FAERS Safety Report 9516678 (Version 1)
Quarter: 2013Q3

REPORT INFORMATION
  Report Type: Spontaneous
  Country: US (occurrence: US)
  Receive Date: 20130911
  Receipt Date: 20130911
  Transmission Date: 20140515
  Serious: No
  Sender: FDA-Public Use
  Company Number: US-BAYER-2013-102567

PATIENT
  Age: 62 Year
  Sex: Female

DRUGS (3)
  1. STAXYN (FDT/ODT) [Suspect]
     Indication: DYSPEPSIA
     Dosage: 10 MG, ONCE A DAY AS NEEDED
     Route: 048
  2. STAXYN (FDT/ODT) [Suspect]
     Indication: OESOPHAGEAL SPASM
  3. STAXYN (FDT/ODT) [Suspect]
     Indication: HYPOTONIA

REACTIONS (1)
  - Off label use [None]
